FAERS Safety Report 14743786 (Version 1)
Quarter: 2018Q2

REPORT INFORMATION
  Report Type: Spontaneous
  Country: CA (occurrence: CA)
  Receive Date: 20180410
  Receipt Date: 20180410
  Transmission Date: 20180711
  Serious: Yes (Other)
  Sender: FDA-Public Use
  Company Number: CA-TEVA-2018-CA-878681

PATIENT
  Age: 70 Year
  Sex: Female
  Weight: 51.3 kg

DRUGS (1)
  1. TEVA-IMATINIB [Suspect]
     Active Substance: IMATINIB
     Indication: CHRONIC MYELOID LEUKAEMIA
     Route: 048

REACTIONS (6)
  - Skin disorder [Unknown]
  - Rash papular [Unknown]
  - Product substitution issue [Unknown]
  - Skin discolouration [Unknown]
  - Rash [Unknown]
  - Rash pruritic [Unknown]
